FAERS Safety Report 11875794 (Version 1)
Quarter: 2015Q4

REPORT INFORMATION
  Report Type: Spontaneous
  Country: US (occurrence: None)
  Receive Date: 20151228
  Receipt Date: 20151228
  Transmission Date: 20160305
  Serious: No
  Sender: FDA-Public Use
  Company Number: None

PATIENT
  Age: 26 Year
  Sex: Female

DRUGS (1)
  1. HUMIRA [Suspect]
     Active Substance: ADALIMUMAB
     Indication: HIDRADENITIS
     Dosage: 40 MG, EVERY 7 DAYS
     Route: 058
     Dates: start: 20150827

REACTIONS (3)
  - Infection [None]
  - Genital disorder female [None]
  - Condition aggravated [None]

NARRATIVE: CASE EVENT DATE: 20151223
